FAERS Safety Report 4850895-2 (Version None)
Quarter: 2005Q4

REPORT INFORMATION
  Report Type: 
  Country: None (occurrence: None)
  Receive Date: 20051212
  Receipt Date: 20051129
  Transmission Date: 20060501
  Serious: Yes (Hospitalization)
  Sender: FDA-Public Use
  Company Number: DE-GLAXOSMITHKLINE-B0394714B

PATIENT
  Age: 66 Year
  Sex: Female

DRUGS (5)
  1. TOPOTECAN [Suspect]
  2. CISPLATIN [Suspect]
  3. PRESOMEN 0.3 [Concomitant]
  4. CIPRAMIL [Concomitant]
  5. STANGYL [Concomitant]

REACTIONS (3)
  - DIARRHOEA [None]
  - DIZZINESS [None]
  - HYPOTENSION [None]
